FAERS Safety Report 24999615 (Version 1)
Quarter: 2025Q1

REPORT INFORMATION
  Report Type: Spontaneous
  Country: US (occurrence: US)
  Receive Date: 20250222
  Receipt Date: 20250222
  Transmission Date: 20250409
  Serious: No
  Sender: SANOFI AVENTIS
  Company Number: US-SA-2025SA050608

PATIENT
  Age: 87 Year
  Sex: Male
  Weight: 80.45 kg

DRUGS (1)
  1. DUPIXENT [Suspect]
     Active Substance: DUPILUMAB
     Indication: Dermatitis atopic
     Dosage: 300 MG, QOW
     Route: 058
     Dates: start: 20250204

REACTIONS (10)
  - Dermatitis atopic [Unknown]
  - Dry skin [Unknown]
  - Skin swelling [Unknown]
  - Pruritus [Unknown]
  - Rash macular [Unknown]
  - Dry eye [Unknown]
  - Weight increased [Unknown]
  - Joint swelling [Unknown]
  - Peripheral swelling [Unknown]
  - Hypertonic bladder [Recovering/Resolving]

NARRATIVE: CASE EVENT DATE: 20250201
